FAERS Safety Report 6638925-9 (Version None)
Quarter: 2010Q1

REPORT INFORMATION
  Report Type: 
  Country: None (occurrence: None)
  Receive Date: 20100317
  Receipt Date: 20100309
  Transmission Date: 20100710
  Serious: Yes (Other)
  Sender: FDA-Public Use
  Company Number: PHEH2010US03041

PATIENT
  Age: 76 Year
  Sex: Male

DRUGS (1)
  1. EXELON [Suspect]
     Dosage: 9.5 MG, QD
     Route: 062
     Dates: start: 20090101

REACTIONS (5)
  - APPLICATION SITE ERYTHEMA [None]
  - CARDIAC DISORDER [None]
  - DEPRESSED MOOD [None]
  - FRUSTRATION [None]
  - NIGHTMARE [None]
